FAERS Safety Report 8570832-7 (Version None)
Quarter: 2012Q3

REPORT INFORMATION
  Report Type: 
  Country: None (occurrence: None)
  Receive Date: 20120806
  Receipt Date: 20120723
  Transmission Date: 20120928
  Serious: No
  Sender: FDA-Public Use
  Company Number: US-009507513-1207USA008986

PATIENT

DRUGS (2)
  1. SINGULAIR [Suspect]
     Indication: ASTHMA
     Dosage: 1 DF, QD
     Route: 048
  2. FLOVENT [Concomitant]

REACTIONS (4)
  - COUGH [None]
  - PNEUMONIA [None]
  - PRODUCT COLOUR ISSUE [None]
  - PRODUCT PHYSICAL ISSUE [None]
